FAERS Safety Report 5852509-1 (Version None)
Quarter: 2008Q3

REPORT INFORMATION
  Report Type: 
  Country: None (occurrence: None)
  Receive Date: 20080820
  Receipt Date: 20080820
  Transmission Date: 20090109
  Serious: Yes (Other)
  Sender: FDA-Public Use
  Company Number: None

PATIENT
  Age: 30 Year
  Sex: Female
  Weight: 54.4316 kg

DRUGS (3)
  1. AVIANE-28 [Suspect]
     Indication: ACNE
     Dosage: 28 DAY DAILY PO
     Route: 048
     Dates: start: 20080114, end: 20080810
  2. AVIANE-28 [Suspect]
     Indication: FIBROCYSTIC BREAST DISEASE
     Dosage: 28 DAY DAILY PO
     Route: 048
     Dates: start: 20080114, end: 20080810
  3. AVIANE-28 [Suspect]
     Indication: PAIN
     Dosage: 28 DAY DAILY PO
     Route: 048
     Dates: start: 20080114, end: 20080810

REACTIONS (5)
  - ACTIVITIES OF DAILY LIVING IMPAIRED [None]
  - BLOOD GLUCOSE ABNORMAL [None]
  - EATING DISORDER [None]
  - FEAR [None]
  - PANIC ATTACK [None]
